FAERS Safety Report 12448093 (Version 3)
Quarter: 2016Q4

REPORT INFORMATION
  Report Type: Spontaneous
  Country: US (occurrence: US)
  Receive Date: 20160608
  Receipt Date: 20161209
  Transmission Date: 20170207
  Serious: Yes (Other)
  Sender: FDA-Public Use
  Company Number: US-BAYER-2016-111522

PATIENT
  Age: 18 Year
  Sex: Female
  Weight: 84.81 kg

DRUGS (2)
  1. MIRENA [Suspect]
     Active Substance: LEVONORGESTREL
     Indication: CONTRACEPTION
     Dosage: UNK
     Route: 015
     Dates: start: 201304, end: 20160526
  2. MIRENA [Suspect]
     Active Substance: LEVONORGESTREL
     Indication: CONTRACEPTION

REACTIONS (6)
  - Device breakage [Recovered/Resolved with Sequelae]
  - Abdominal pain upper [None]
  - Embedded device [Recovered/Resolved with Sequelae]
  - Complication of device removal [None]
  - Device issue [None]
  - Procedural pain [None]

NARRATIVE: CASE EVENT DATE: 2016
